FAERS Safety Report 8430024 (Version 2)
Quarter: 2012Q4

REPORT INFORMATION
  Report Type: Report from Study
  Country: JP (occurrence: KR)
  Receive Date: 20120228
  Receipt Date: 20120914
  Transmission Date: 20130627
  Serious: Yes (Hospitalization)
  Sender: FDA-Public Use
  Company Number: KR-BRISTOL-MYERS SQUIBB COMPANY-16414799

PATIENT
  Age: 19 Year
  Sex: Female

DRUGS (3)
  1. ABILIFY TABS [Suspect]
     Indication: SCHIZOPHRENIA
     Route: 048
     Dates: start: 20100717
  2. ATIVAN [Concomitant]
     Indication: SLEEP DISORDER
     Route: 065
     Dates: start: 20100720, end: 20100927
  3. RIZE [Concomitant]

REACTIONS (1)
  - Schizophrenia [Recovered/Resolved]
